FAERS Safety Report 18162240 (Version 1)
Quarter: 2020Q3

REPORT INFORMATION
  Report Type: Spontaneous
  Country: US (occurrence: US)
  Receive Date: 20200817
  Receipt Date: 20200817
  Transmission Date: 20201103
  Serious: Yes (Hospitalization)
  Sender: FDA-Public Use
  Company Number: None

PATIENT
  Age: 53 Year
  Sex: Female

DRUGS (1)
  1. BOSENTAN 125MG TABLETS 60/BO (TEVA) [Suspect]
     Active Substance: BOSENTAN
     Indication: PULMONARY ARTERIAL HYPERTENSION
     Route: 048
     Dates: start: 20190610

REACTIONS (5)
  - Nausea [None]
  - Diarrhoea [None]
  - Pancreatitis acute [None]
  - Vomiting [None]
  - Aortic dissection [None]

NARRATIVE: CASE EVENT DATE: 20200803
